FAERS Safety Report 5636426-8 (Version None)
Quarter: 2008Q1

REPORT INFORMATION
  Report Type: 
  Country: None (occurrence: None)
  Receive Date: 20080225
  Receipt Date: 20080116
  Transmission Date: 20080703
  Serious: No
  Sender: FDA-Public Use
  Company Number: A0703644A

PATIENT
  Sex: Female

DRUGS (1)
  1. VERAMYST [Suspect]
     Indication: DRUG USE FOR UNKNOWN INDICATION
     Route: 065

REACTIONS (4)
  - CARDIAC DISORDER [None]
  - ERYTHEMA [None]
  - HYPOAESTHESIA FACIAL [None]
  - SWELLING FACE [None]
